FAERS Safety Report 7771565-7 (Version None)
Quarter: 2011Q3

REPORT INFORMATION
  Report Type: 
  Country: None (occurrence: None)
  Receive Date: 20110922
  Receipt Date: 20110413
  Transmission Date: 20111222
  Serious: Yes (Other)
  Sender: FDA-Public Use
  Company Number: US-ASTRAZENECA-2009UW11855

PATIENT
  Age: 22 Year
  Sex: Female
  Weight: 95.3 kg

DRUGS (9)
  1. DEPAKOTE ER [Concomitant]
     Dates: start: 20050708
  2. WARFARIN SODIUM [Concomitant]
     Dates: start: 20050708
  3. CARBATROL [Concomitant]
     Dates: start: 20060614
  4. SEROQUEL [Suspect]
     Indication: INSOMNIA
     Route: 048
     Dates: start: 20030101, end: 20080101
  5. AMIDRINE [Concomitant]
     Dates: start: 20030821
  6. SULFAMETHOXAZOLE AND TRIMETHOPRIM [Concomitant]
     Dates: start: 20030203
  7. ZOLOFT [Concomitant]
     Dates: start: 20060301
  8. SEROQUEL [Suspect]
     Dosage: 25 TO 50 MG
     Route: 048
     Dates: start: 20060301
  9. LEXAPRO [Concomitant]
     Dates: start: 20070507

REACTIONS (4)
  - MATERNAL EXPOSURE DURING PREGNANCY [None]
  - DIABETES MELLITUS [None]
  - PANCREATITIS [None]
  - GESTATIONAL DIABETES [None]
